FAERS Safety Report 9367841 (Version 1)
Quarter: 2013Q2

REPORT INFORMATION
  Report Type: Spontaneous
  Country: US (occurrence: US)
  Receive Date: 20130625
  Receipt Date: 20130625
  Transmission Date: 20140414
  Serious: No
  Sender: FDA-Public Use
  Company Number: US-UPSHER-SMITH LABORATORIES, INC.-13002031

PATIENT
  Age: 51 Year
  Sex: Female

DRUGS (5)
  1. NYAMYC [Suspect]
     Indication: FUNGAL INFECTION
     Dosage: UNK, ONCE
     Route: 061
     Dates: start: 201305, end: 201305
  2. REGULAR INSULIN [Concomitant]
     Indication: DIABETES MELLITUS
     Dosage: UNK
  3. SYNTHROID [Concomitant]
     Indication: HYPOTHYROIDISM
     Dosage: UNK
  4. LISINOPRIL [Concomitant]
     Indication: RENAL IMPAIRMENT
     Dosage: UNK
  5. SIMVASTATIN [Concomitant]
     Indication: BLOOD CHOLESTEROL INCREASED
     Dosage: UNK

REACTIONS (1)
  - Chemical burn of skin [Recovered/Resolved]
